FAERS Safety Report 8358341-1 (Version None)
Quarter: 2012Q2

REPORT INFORMATION
  Report Type: 
  Country: None (occurrence: None)
  Receive Date: 20120514
  Receipt Date: 20110426
  Transmission Date: 20120825
  Serious: No
  Sender: FDA-Public Use
  Company Number: US-ALEXION-A201100591

PATIENT
  Sex: Female
  Weight: 72.7 kg

DRUGS (17)
  1. ATIVAN [Concomitant]
  2. SOLIRIS [Suspect]
     Dosage: 900 MG, QW
  3. PROCHLORPERAZINE [Concomitant]
     Dosage: 10 MG, QID, PRN
  4. SOLIRIS [Suspect]
     Indication: PAROXYSMAL NOCTURNAL HAEMOGLOBINURIA
     Dosage: UNK
     Route: 042
     Dates: start: 20100721, end: 20101101
  5. SOLIRIS [Suspect]
     Dosage: 1200 MG, QW
     Route: 042
     Dates: start: 20101123
  6. AMBIEN [Concomitant]
     Dosage: 10 MG, QD (QHS), PRN
     Route: 048
  7. CYMBALTA [Concomitant]
  8. TYLENOL (CAPLET) [Concomitant]
     Dosage: 650 MG, QID, PRN
  9. CITALOPRAM HYDROBROMIDE [Concomitant]
     Dosage: 20 MG, QD
     Route: 048
  10. PANTOPRAZOLE SODIUM [Concomitant]
     Dosage: 40 MG, UNK
     Route: 048
  11. LORAZEPAM [Concomitant]
     Dosage: 1 MG, QID, PRN
     Route: 048
  12. LOVENOX [Concomitant]
     Indication: TREATMENT NONCOMPLIANCE
     Dosage: 100 MG/ML, QD
     Route: 058
  13. COUMADIN [Concomitant]
     Indication: ANTICOAGULANT THERAPY
  14. DEPO-PROVERA [Concomitant]
     Dosage: 1 SHOT EVERY 3 MONTHS
     Route: 030
  15. NAPROXEN (ALEVE) [Concomitant]
     Dosage: UNK
     Route: 048
  16. SOLIRIS [Suspect]
     Dosage: 1200 MG, Q2W
     Route: 042
     Dates: start: 20101109, end: 20101101
  17. PENTAZOCINE AND NALOXONE HYDROCHLORIDES [Concomitant]
     Dosage: 1 TAB, Q4H PRN
     Route: 048

REACTIONS (17)
  - MASTICATION DISORDER [None]
  - ANAEMIA [None]
  - PAIN [None]
  - ACTIVITIES OF DAILY LIVING IMPAIRED [None]
  - VISION BLURRED [None]
  - SPLENOMEGALY [None]
  - CONSTIPATION [None]
  - EMOTIONAL DISTRESS [None]
  - DRUG DEPENDENCE [None]
  - ARTHRALGIA [None]
  - BACK PAIN [None]
  - DYSPHAGIA [None]
  - CONDITION AGGRAVATED [None]
  - BLOOD LACTATE DEHYDROGENASE INCREASED [None]
  - DIPLOPIA [None]
  - JOINT INJURY [None]
  - ABDOMINAL PAIN UPPER [None]
